FAERS Safety Report 20092481 (Version 1)
Quarter: 2021Q4

REPORT INFORMATION
  Report Type: Spontaneous
  Country: CO (occurrence: CO)
  Receive Date: 20211119
  Receipt Date: 20211119
  Transmission Date: 20220303
  Serious: No
  Sender: FDA-Public Use
  Company Number: CO-PFIZER INC-202101232722

PATIENT
  Age: 13 Year
  Sex: Male

DRUGS (1)
  1. GENOTROPIN [Suspect]
     Active Substance: SOMATROPIN
     Dosage: 1.8 MG, UNSPECIFIED FREQUENCY
     Route: 058

REACTIONS (3)
  - Expired device used [Unknown]
  - Wrong technique in device usage process [Unknown]
  - Device mechanical issue [Unknown]
